FAERS Safety Report 26152076 (Version 1)
Quarter: 2025Q4

REPORT INFORMATION
  Report Type: Spontaneous
  Country: US (occurrence: US)
  Receive Date: 20251214
  Receipt Date: 20251214
  Transmission Date: 20260118
  Serious: Yes (Other)
  Sender: ROCHE
  Company Number: US-BoehringerIngelheim-2025-BI-111932

PATIENT
  Age: 62 Year
  Sex: Male

DRUGS (1)
  1. TENECTEPLASE [Suspect]
     Active Substance: TENECTEPLASE
     Indication: Basal ganglia stroke

REACTIONS (7)
  - Renal embolism [Unknown]
  - Acute kidney injury [Unknown]
  - Chronic kidney disease [Unknown]
  - Acidosis hyperchloraemic [Unknown]
  - Hyperphosphataemia [Unknown]
  - Atheroembolism [Unknown]
  - Renal impairment [Unknown]
